FAERS Safety Report 8770321 (Version 2)
Quarter: 2012Q4

REPORT INFORMATION
  Report Type: Report from Study
  Country: JP (occurrence: JP)
  Receive Date: 20120906
  Receipt Date: 20121127
  Transmission Date: 20130627
  Serious: Yes (Hospitalization)
  Sender: FDA-Public Use
  Company Number: JP-VERTEX PHARMACEUTICAL INC.-AE-2012-008897

PATIENT
  Age: 60 Year
  Sex: Male

DRUGS (16)
  1. VX-950 (TELAPREVIR) [Suspect]
     Indication: CHRONIC HEPATITIS C
     Dosage: 2250 mg, qd
     Route: 048
     Dates: start: 20120308, end: 20120510
  2. VX-950 (TELAPREVIR) [Suspect]
     Dosage: 1500 mg, qd
     Route: 048
     Dates: start: 20120511, end: 20120525
  3. PEGINTRON                          /01543001/ [Suspect]
     Indication: CHRONIC HEPATITIS C
     Dosage: 1.5 ?g/kg, UNK
     Route: 058
     Dates: start: 20120308, end: 20120328
  4. PEGINTRON                          /01543001/ [Suspect]
     Dosage: 0.75 ?g/kg, UNK
     Route: 058
     Dates: start: 20120329, end: 20120405
  5. PEGINTRON                          /01543001/ [Suspect]
     Dosage: 1.5 ?g/kg, UNK
     Route: 058
     Dates: start: 20120406, end: 20120525
  6. PEGINTRON                          /01543001/ [Suspect]
     Dosage: 1.5 ?g/kg, UNK
     Route: 058
     Dates: start: 20120613, end: 20120622
  7. REBETOL [Suspect]
     Indication: CHRONIC HEPATITIS C
     Dosage: 800 mg, qd
     Route: 048
     Dates: start: 20120308, end: 20120510
  8. REBETOL [Suspect]
     Dosage: 400 mg, qd
     Route: 048
     Dates: start: 20120511, end: 20120525
  9. REBETOL [Suspect]
     Dosage: 400 mg, qd
     Route: 048
     Dates: start: 20120613, end: 20120629
  10. ALTAT [Concomitant]
     Dosage: 150 mg, qd
     Route: 048
     Dates: start: 20081215
  11. MUCOSTA [Concomitant]
     Dosage: 300 mg, qd
     Route: 048
     Dates: start: 20081215
  12. CONSTAN                            /00595201/ [Concomitant]
     Dosage: 1.2 mg, qd
     Route: 048
     Dates: start: 20081215
  13. MYSLEE [Concomitant]
     Dosage: 10 mg, qd
     Route: 048
     Dates: start: 20111128
  14. LENDORMIN DAINIPPO [Concomitant]
     Dosage: 0.25 mg, qd
     Route: 048
     Dates: start: 20111128
  15. URSO                               /00465701/ [Concomitant]
     Dosage: 600 mg, qd
     Route: 048
     Dates: start: 20081215
  16. TALION                             /01587402/ [Concomitant]
     Dosage: 20 mg, qd
     Route: 048
     Dates: end: 20120716

REACTIONS (1)
  - Decreased appetite [Recovered/Resolved]
